FAERS Safety Report 4319286-7 (Version None)
Quarter: 2004Q1

REPORT INFORMATION
  Report Type: 
  Country: None (occurrence: None)
  Receive Date: 20040318
  Receipt Date: 20040318
  Transmission Date: 20041129
  Serious: Yes (Death)
  Sender: FDA-Public Use
  Company Number: None

PATIENT
  Sex: Female
  Weight: 54 kg

DRUGS (6)
  1. GEMZAR [Suspect]
     Indication: BREAST CANCER METASTATIC
     Dosage: 2200MG DAY 1 + DA INTRAVENOUS
     Route: 042
     Dates: start: 20020919, end: 20040218
  2. MTA LY 231514 500 MG [Suspect]
     Indication: BREAST CANCER METASTATIC
     Dosage: 440 MG DAY 8 INTRAVENOUS
     Route: 042
     Dates: start: 20020919, end: 20040218
  3. MTA LY 23514 [Suspect]
  4. LUPRON [Concomitant]
  5. ZOMETA [Concomitant]
  6. GCSF [Concomitant]

REACTIONS (1)
  - DISEASE PROGRESSION [None]
